FAERS Safety Report 8092690-X (Version None)
Quarter: 2012Q1

REPORT INFORMATION
  Report Type: 
  Country: None (occurrence: None)
  Receive Date: 20120128
  Receipt Date: 20110726
  Transmission Date: 20120608
  Serious: No
  Sender: FDA-Public Use
  Company Number: US-ABBOTT-11P-163-0841642-00

PATIENT
  Sex: Female
  Weight: 81.72 kg

DRUGS (2)
  1. HUMIRA [Suspect]
     Indication: PSORIASIS
     Dosage: 1 IN 2 WEEKS: SYRINGES
     Route: 058
     Dates: start: 20100101, end: 20100301
  2. HUMIRA [Suspect]
     Dosage: 1 IN 2 WEEKS: PENS
     Route: 058
     Dates: start: 20100301, end: 20110301

REACTIONS (1)
  - PSORIASIS [None]
